FAERS Safety Report 6506844-4 (Version None)
Quarter: 2009Q4

REPORT INFORMATION
  Report Type: 
  Country: None (occurrence: None)
  Receive Date: 20091216
  Receipt Date: 20091201
  Transmission Date: 20100525
  Serious: Yes (Death, Hospitalization)
  Sender: FDA-Public Use
  Company Number: 105

PATIENT
  Age: 49 Year
  Sex: Female
  Weight: 119.296 kg

DRUGS (12)
  1. FAZACLO ODT [Suspect]
     Indication: SCHIZOPHRENIA
     Dosage: 450 MG PO DAILY
     Route: 048
     Dates: start: 20060828, end: 20070124
  2. ASPIRIN [Concomitant]
  3. LEVOTHYROXINE SODIUM [Concomitant]
  4. CELEXA [Concomitant]
  5. LIPITOR [Concomitant]
  6. VALPROIC ACID [Concomitant]
  7. OSCAL [Concomitant]
  8. M.V.I. [Concomitant]
  9. PRN: MOM [Concomitant]
  10. COGENTIN [Concomitant]
  11. HALDOL [Concomitant]
  12. ATIVAN [Concomitant]

REACTIONS (3)
  - ACUTE MYOCARDIAL INFARCTION [None]
  - HYPONATRAEMIA [None]
  - MENTAL STATUS CHANGES [None]
